FAERS Safety Report 21199004 (Version 2)
Quarter: 2023Q1

REPORT INFORMATION
  Report Type: Other
  Country: US (occurrence: None)
  Receive Date: 20220811
  Receipt Date: 20230103
  Transmission Date: 20230417
  Serious: Yes (Other)
  Sender: FDA-Public Use
  Company Number: US-ROCHE-3064211

PATIENT
  Sex: Male

DRUGS (1)
  1. CELLCEPT [Suspect]
     Active Substance: MYCOPHENOLATE MOFETIL
     Indication: Neuromyelitis optica spectrum disorder
     Dosage: 1 BID
     Route: 065

REACTIONS (6)
  - Confusional state [Unknown]
  - Memory impairment [Unknown]
  - Off label use [Unknown]
  - Multiple sclerosis [Unknown]
  - Intracranial mass [Unknown]
  - Memory impairment [Unknown]
